FAERS Safety Report 6417874-5 (Version None)
Quarter: 2009Q4

REPORT INFORMATION
  Report Type: 
  Country: None (occurrence: None)
  Receive Date: 20091028
  Receipt Date: 20091027
  Transmission Date: 20100525
  Serious: Yes (Other)
  Sender: FDA-Public Use
  Company Number: A0813161A

PATIENT
  Age: 45 Year
  Sex: Female

DRUGS (4)
  1. WELLBUTRIN SR [Suspect]
     Indication: DEPRESSION
     Dosage: 100MG PER DAY
     Route: 048
     Dates: start: 20071101
  2. PROZAC [Concomitant]
  3. ZYPREXA [Concomitant]
  4. LAMICTAL [Concomitant]

REACTIONS (2)
  - DEAFNESS BILATERAL [None]
  - INCORRECT DOSE ADMINISTERED [None]
